FAERS Safety Report 18247524 (Version 5)
Quarter: 2020Q4

REPORT INFORMATION
  Report Type: Report from Study
  Country: AU (occurrence: AU)
  Receive Date: 20200909
  Receipt Date: 20201113
  Transmission Date: 20210113
  Serious: Yes (Life-Threatening)
  Sender: FDA-Public Use
  Company Number: AU-PFIZER INC-2020345383

PATIENT
  Weight: 5.6 kg

DRUGS (12)
  1. GEMTUZUMAB OZOGAMICIN [Suspect]
     Active Substance: GEMTUZUMAB OZOGAMICIN
     Indication: ACUTE MYELOID LEUKAEMIA
     Dosage: 0.5 MG
     Route: 042
     Dates: start: 20200824, end: 20200824
  2. MITOXANTRONE HCL [Suspect]
     Active Substance: MITOXANTRONE HYDROCHLORIDE
     Indication: ACUTE MYELOID LEUKAEMIA
     Dosage: 0.4 MG/KG, 1X/DAY
     Route: 042
     Dates: start: 20200820, end: 20200823
  3. DEXAMETHASONE. [Concomitant]
     Active Substance: DEXAMETHASONE
     Indication: VOMITING
  4. DEXAMETHASONE. [Concomitant]
     Active Substance: DEXAMETHASONE
     Indication: NAUSEA
     Dosage: 0.5 MG, 2X/DAY
     Dates: start: 20200825, end: 20200831
  5. INFACOL [SIMETICONE] [Concomitant]
     Indication: ABDOMINAL PAIN
     Dosage: 0.5 ML (OTHER) (PRE FEED)
     Dates: start: 20200824, end: 20200829
  6. AMBISOME [Concomitant]
     Active Substance: AMPHOTERICIN B
     Indication: PROPHYLAXIS
     Dosage: 16 MG (OTHER) (MONDAY+WEDNESDAY+FRIDAY)
     Dates: start: 20200824
  7. FRUSEMIDE ALMUS [Concomitant]
     Indication: FLUID OVERLOAD
     Dosage: 2.5 MG (OTHER) (SINGLE DOSE)
     Dates: start: 20200821, end: 20200821
  8. PENTAMIDINE [Concomitant]
     Active Substance: PENTAMIDINE
     Indication: PNEUMOCYSTIS JIROVECII PNEUMONIA
     Dosage: 22 MG (OTHER) (4 WEEKLY)
     Dates: start: 20200828
  9. ALLOPURINOL. [Concomitant]
     Active Substance: ALLOPURINOL
     Indication: TUMOUR LYSIS SYNDROME
     Dosage: 50 MG, 1X/DAY
     Dates: start: 20200820, end: 20200823
  10. VANCOMYCIN [Concomitant]
     Active Substance: VANCOMYCIN
     Indication: FEBRILE NEUTROPENIA
     Dosage: 160 MG, 2X/DAY
     Dates: start: 20200829, end: 20200831
  11. PARACETAMOL [Concomitant]
     Active Substance: ACETAMINOPHEN
     Indication: PAIN
     Dosage: 80 MG, 1X/DAY
     Dates: start: 20200823
  12. PIPERACILLIN AND TAZOBACTAM [Concomitant]
     Active Substance: PIPERACILLIN SODIUM\TAZOBACTAM SODIUM
     Indication: FEBRILE NEUTROPENIA
     Dosage: 540 MG (EVERY HOUR)
     Dates: start: 20200829, end: 20200831

REACTIONS (1)
  - Laryngeal obstruction [Recovered/Resolved]

NARRATIVE: CASE EVENT DATE: 20200830
